FAERS Safety Report 9759540 (Version 2)
Quarter: 2015Q3

REPORT INFORMATION
  Report Type: Spontaneous
  Country: US (occurrence: US)
  Receive Date: 20131216
  Receipt Date: 20150805
  Transmission Date: 20151125
  Serious: No
  Sender: FDA-Public Use
  Company Number: US-GILEAD-2010-0028011

PATIENT
  Age: 72 Year
  Sex: Male

DRUGS (13)
  1. LETAIRIS [Suspect]
     Active Substance: AMBRISENTAN
     Indication: PULMONARY ARTERIAL HYPERTENSION
     Route: 048
     Dates: start: 20091230, end: 20100303
  2. LISINOPRIL. [Concomitant]
     Active Substance: LISINOPRIL
  3. TRAVATAN [Concomitant]
     Active Substance: TRAVOPROST
  4. TORSEMIDE. [Concomitant]
     Active Substance: TORSEMIDE
  5. GLIMEPIRIDE. [Concomitant]
     Active Substance: GLIMEPIRIDE
  6. ALPHAGAN P [Concomitant]
     Active Substance: BRIMONIDINE TARTRATE
  7. DESONIDE. [Concomitant]
     Active Substance: DESONIDE
  8. FISH OIL [Concomitant]
     Active Substance: FISH OIL
  9. DORZOLAMIDE HYDROCHLORIDE/TIMOLOL MALEATE [Concomitant]
  10. CLONIDINE HCL [Concomitant]
     Active Substance: CLONIDINE HYDROCHLORIDE
  11. LASIX [Concomitant]
     Active Substance: FUROSEMIDE
  12. NORVASC [Concomitant]
     Active Substance: AMLODIPINE BESYLATE
  13. ZOCOR [Concomitant]
     Active Substance: SIMVASTATIN

REACTIONS (1)
  - Oedema [Recovering/Resolving]

NARRATIVE: CASE EVENT DATE: 20091230
